FAERS Safety Report 6426185-3 (Version None)
Quarter: 2009Q4

REPORT INFORMATION
  Report Type: 
  Country: None (occurrence: None)
  Receive Date: 20091104
  Receipt Date: 20091027
  Transmission Date: 20100525
  Serious: Yes (Hospitalization, Other)
  Sender: FDA-Public Use
  Company Number: BR-JNJFOC-20091100019

PATIENT
  Age: 74 Year
  Sex: Male

DRUGS (6)
  1. MOTILIUM [Suspect]
     Indication: DYSPEPSIA
     Route: 048
     Dates: start: 20090801
  2. MYLICON [Suspect]
     Indication: FLATULENCE
     Dosage: AFTER MEALS
     Route: 065
     Dates: start: 20090801
  3. PARIET [Suspect]
     Indication: DRUG USE FOR UNKNOWN INDICATION
     Dosage: 1 TABLET OF 10 MG IN FASTING
     Route: 048
     Dates: start: 20090901
  4. RISPERIDONE [Concomitant]
     Indication: AGGRESSION
     Route: 065
     Dates: start: 20091001, end: 20091025
  5. ALOIS [Concomitant]
     Indication: DEMENTIA ALZHEIMER'S TYPE
     Route: 048
  6. MULTI-VITAMINS [Concomitant]
     Indication: VITAMIN SUPPLEMENTATION
     Route: 065

REACTIONS (3)
  - ABDOMINAL PAIN [None]
  - AGITATION [None]
  - PNEUMONIA [None]
